FAERS Safety Report 17021491 (Version 1)
Quarter: 2019Q4

REPORT INFORMATION
  Report Type: Spontaneous
  Country: US (occurrence: US)
  Receive Date: 20191111
  Receipt Date: 20191111
  Transmission Date: 20200122
  Serious: Yes (Hospitalization)
  Sender: FDA-Public Use
  Company Number: None

PATIENT
  Age: 18 Year
  Sex: Female

DRUGS (1)
  1. REBIF [Suspect]
     Active Substance: INTERFERON BETA-1A
     Indication: MULTIPLE SCLEROSIS
     Dosage: ?          OTHER FREQUENCY:3 X WEEKLY;?
     Route: 058
     Dates: start: 20190618

REACTIONS (3)
  - Influenza like illness [None]
  - Back pain [None]
  - Seizure [None]

NARRATIVE: CASE EVENT DATE: 20191028
